FAERS Safety Report 7626307-2 (Version None)
Quarter: 2011Q3

REPORT INFORMATION
  Report Type: 
  Country: None (occurrence: None)
  Receive Date: 20110721
  Receipt Date: 20110713
  Transmission Date: 20111222
  Serious: Yes (Life-Threatening)
  Sender: FDA-Public Use
  Company Number: PHHY2011JP63684

PATIENT
  Age: 46 Year
  Sex: Female

DRUGS (3)
  1. ZOMETA [Suspect]
     Indication: METASTASES TO BONE
     Dosage: UNK
     Route: 041
     Dates: start: 20110101, end: 20110601
  2. ZOMETA [Suspect]
     Dosage: UNK
  3. CHEMOTHERAPEUTICS NOS [Concomitant]

REACTIONS (4)
  - PAIN [None]
  - OSTEOMYELITIS [None]
  - OSTEONECROSIS [None]
  - INFLAMMATION [None]
